FAERS Safety Report 5133496-0 (Version None)
Quarter: 2006Q4

REPORT INFORMATION
  Report Type: 
  Country: None (occurrence: None)
  Receive Date: 20061024
  Receipt Date: 20061017
  Transmission Date: 20070319
  Serious: Yes (Other)
  Sender: FDA-Public Use
  Company Number: 2006UW20061

PATIENT
  Age: 55 Year
  Sex: Female
  Weight: 72.6 kg

DRUGS (4)
  1. ARIMIDEX [Suspect]
     Indication: BREAST CANCER
     Route: 048
     Dates: start: 20050101
  2. LOTREL [Concomitant]
  3. PROZAC [Concomitant]
  4. VOLTAREN CREAM [Concomitant]

REACTIONS (1)
  - PROTEINURIA [None]
